FAERS Safety Report 8179288 (Version 7)
Quarter: 2014Q1

REPORT INFORMATION
  Report Type: Report from Study
  Country: PL (occurrence: PL)
  Receive Date: 20111013
  Receipt Date: 20140127
  Transmission Date: 20141002
  Serious: Yes (Hospitalization, Other)
  Sender: FDA-Public Use
  Company Number: PL-BAYER-2011-092327

PATIENT
  Age: 71 Year
  Sex: Male
  Weight: 105 kg

DRUGS (16)
  1. SORAFENIB (RAF KINASE INHIBITOR) [Suspect]
     Indication: METASTATIC RENAL CELL CARCINOMA
     Dosage: UNK
     Dates: start: 20080605
  2. SORAFENIB (RAF KINASE INHIBITOR) [Suspect]
     Indication: METASTATIC RENAL CELL CARCINOMA
     Dosage: 400 MG, QOD
     Dates: start: 20110228, end: 2011
  3. SORAFENIB (RAF KINASE INHIBITOR) [Suspect]
     Indication: METASTATIC RENAL CELL CARCINOMA
     Dosage: 400 MG, QOD, (400MG EVERY SECOND DAY)
     Dates: start: 20110426, end: 20110915
  4. POLOCARD [Concomitant]
     Indication: MYOCARDIAL ISCHAEMIA
     Dosage: 75 MG, UNK
     Route: 048
     Dates: start: 2006
  5. MEMOTROPIL [Concomitant]
     Indication: PROPHYLAXIS
     Dosage: 1.2 G, QD
     Route: 048
     Dates: start: 2006
  6. MILURIT [Concomitant]
     Indication: PROPHYLAXIS
     Dosage: 100 MG, QD
     Route: 048
     Dates: start: 2006
  7. INSULIN HM MIXTARD [Concomitant]
     Indication: DIABETES MELLITUS
     Dosage: UNK UNK, PRN
     Route: 058
     Dates: start: 2006
  8. BISOCARD [Concomitant]
     Indication: MYOCARDIAL ISCHAEMIA
     Dosage: 5 MG, QD
     Route: 048
     Dates: start: 2006
  9. FUROSEMIDE [Concomitant]
     Indication: MYOCARDIAL ISCHAEMIA
     Dosage: 40 MG, QD
     Route: 048
     Dates: start: 2006
  10. DOXANORM [Concomitant]
     Indication: MYOCARDIAL ISCHAEMIA
     Dosage: 4 MG, QD
     Route: 048
     Dates: start: 2006
  11. DOXANORM [Concomitant]
     Indication: HYPERTENSION
  12. DIUVER [Concomitant]
     Indication: HYPERTENSION
     Dosage: 5 MG, QD
     Route: 048
     Dates: start: 2006
  13. PENTOHEXAL [Concomitant]
     Indication: PERIPHERAL ISCHAEMIA
     Dosage: 1 DF, QD
     Route: 048
     Dates: start: 2006
  14. VESSEL DUE [Concomitant]
     Indication: PERIPHERAL ISCHAEMIA
     Dosage: 1 DF, QD
     Route: 048
     Dates: start: 2006
  15. PLAVIX [Concomitant]
     Indication: ACUTE MYOCARDIAL INFARCTION
     Dosage: 75 MG, QD
     Route: 048
     Dates: start: 20110227
  16. CRESTOR [Concomitant]
     Indication: PROPHYLAXIS
     Dosage: 5 MG, UNK
     Route: 048
     Dates: start: 2006

REACTIONS (1)
  - Femoral artery occlusion [Recovering/Resolving]
